FAERS Safety Report 5120110-3 (Version None)
Quarter: 2006Q4

REPORT INFORMATION
  Report Type: 
  Country: None (occurrence: None)
  Receive Date: 20061002
  Receipt Date: 20061002
  Transmission Date: 20070319
  Serious: Yes (Other)
  Sender: FDA-Public Use
  Company Number: None

PATIENT
  Age: 76 Year
  Sex: Male
  Weight: 90.7194 kg

DRUGS (2)
  1. PROPOFOL [Suspect]
     Indication: CARDIOVERSION
     Dosage: 120 MG TOTAL DOSE- SPLIT IV BOLUS
     Route: 040
     Dates: start: 20060929, end: 20060929
  2. PROPOFOL [Suspect]
     Indication: SEDATIVE THERAPY
     Dosage: 120 MG TOTAL DOSE- SPLIT IV BOLUS
     Route: 040
     Dates: start: 20060929, end: 20060929

REACTIONS (2)
  - SNEEZING [None]
  - THERAPEUTIC RESPONSE DECREASED [None]
